FAERS Safety Report 17663921 (Version 2)
Quarter: 2020Q2

REPORT INFORMATION
  Report Type: Spontaneous
  Country: PL (occurrence: PL)
  Receive Date: 20200414
  Receipt Date: 20200514
  Transmission Date: 20200713
  Serious: Yes (Life-Threatening, Hospitalization, Other)
  Sender: FDA-Public Use
  Company Number: PL-009507513-2004POL001808

PATIENT
  Age: 59 Year
  Sex: Male

DRUGS (13)
  1. CEFTRIAXONE. [Suspect]
     Active Substance: CEFTRIAXONE
     Indication: INFECTION
     Dosage: UNK
  2. LINEZOLID. [Suspect]
     Active Substance: LINEZOLID
     Indication: INFECTION
     Dosage: UNK
  3. HEPARIN [Suspect]
     Active Substance: HEPARIN SODIUM
     Indication: PULMONARY EMBOLISM
     Dosage: ROUTE: CONTINUOUS VENO-VENOUS HEMOFILTRATION.
     Route: 042
  4. MERONEM [Suspect]
     Active Substance: MEROPENEM
     Indication: INFECTION
     Dosage: UNK
  5. LEVOXA [Suspect]
     Active Substance: LEVOFLOXACIN
     Indication: INFECTION
     Dosage: UNK
  6. DIFLUCAN [Concomitant]
     Active Substance: FLUCONAZOLE
     Indication: CANDIDA INFECTION
     Dosage: UNK
     Route: 065
  7. TAZOCIN (PIPERACILLIN SODIUM (+) TAZOBACTAM SODIUM) [Suspect]
     Active Substance: PIPERACILLIN SODIUM\TAZOBACTAM SODIUM
     Indication: INFECTION
     Dosage: UNK
  8. DALACIN C (CLINDAMYCIN) [Suspect]
     Active Substance: CLINDAMYCIN
     Indication: INFECTION
     Dosage: UNK
  9. IMIPENEM AND CILASTATIN [Suspect]
     Active Substance: CILASTATIN SODIUM\IMIPENEM
     Indication: INFECTION
     Dosage: UNK
  10. XYDALBA [Suspect]
     Active Substance: DALBAVANCIN HYDROCHLORIDE
     Indication: INFECTION
     Dosage: 1500 MILLIGRAM, EMPIRICALLY ADMINISTERED, TOTAL
     Route: 042
  11. COLISTIN [Suspect]
     Active Substance: COLISTIN
     Indication: ACINETOBACTER INFECTION
  12. VORICONAZOLE. [Concomitant]
     Active Substance: VORICONAZOLE
     Indication: CANDIDA INFECTION
     Dosage: UNK
  13. COLISTIN [Suspect]
     Active Substance: COLISTIN
     Indication: KLEBSIELLA INFECTION
     Dosage: UNK

REACTIONS (2)
  - Heparin-induced thrombocytopenia [Unknown]
  - Drug ineffective [Not Recovered/Not Resolved]
